FAERS Safety Report 14384940 (Version 1)
Quarter: 2018Q1

REPORT INFORMATION
  Report Type: Spontaneous
  Country: FR (occurrence: FR)
  Receive Date: 20180115
  Receipt Date: 20180115
  Transmission Date: 20180509
  Serious: Yes (Other)
  Sender: FDA-Public Use
  Company Number: FR-ELI_LILLY_AND_COMPANY-FR201801002118

PATIENT
  Age: 69 Year
  Sex: Male
  Weight: 57 kg

DRUGS (2)
  1. ALIMTA [Suspect]
     Active Substance: PEMETREXED DISODIUM
     Indication: LUNG ADENOCARCINOMA
     Dosage: 1 G, UNKNOWN
     Route: 042
     Dates: start: 20171027, end: 20171027
  2. CISPLATINE MERCK [Suspect]
     Active Substance: CISPLATIN
     Indication: LUNG ADENOCARCINOMA
     Dosage: 149 MG, UNKNOWN
     Route: 041
     Dates: start: 20171027, end: 20171027

REACTIONS (3)
  - Proteinuria [Recovered/Resolved]
  - Weight decreased [Recovering/Resolving]
  - Accidental overdose [Recovered/Resolved]

NARRATIVE: CASE EVENT DATE: 20171117
